FAERS Safety Report 24857186 (Version 1)
Quarter: 2025Q1

REPORT INFORMATION
  Report Type: Spontaneous
  Country: TW (occurrence: TW)
  Receive Date: 20250117
  Receipt Date: 20250117
  Transmission Date: 20250408
  Serious: Yes (Death, Other)
  Sender: FRESENIUS KABI
  Company Number: TW-FreseniusKabi-FK202500563

PATIENT
  Age: 71 Year
  Sex: Male
  Weight: 55.7 kg

DRUGS (2)
  1. CISPLATIN [Suspect]
     Active Substance: CISPLATIN
     Indication: Chemotherapy
     Route: 042
     Dates: start: 20241231
  2. ETOPOSIDE [Suspect]
     Active Substance: ETOPOSIDE
     Indication: Chemotherapy
     Route: 042
     Dates: start: 20241231

REACTIONS (5)
  - Septic shock [Fatal]
  - Febrile neutropenia [Fatal]
  - Renal impairment [Recovered/Resolved]
  - Anaemia [Unknown]
  - Thrombocytopenia [Unknown]

NARRATIVE: CASE EVENT DATE: 20250102
